FAERS Safety Report 6429530 (Version 18)
Quarter: 2013Q2

REPORT INFORMATION
  Report Type: Spontaneous
  Country: US (occurrence: US)
  Receive Date: 20070928
  Receipt Date: 20130611
  Transmission Date: 20140414
  Serious: Yes (Hospitalization, Disabling, Other)
  Sender: FDA-Public Use
  Company Number: PHEH2007US12807

PATIENT
  Age: 52 Year
  Sex: Male
  Weight: 80.73 kg

DRUGS (21)
  1. AREDIA [Suspect]
     Indication: PLASMA CELL MYELOMA
     Dates: start: 20020115, end: 20020409
  2. AREDIA [Suspect]
  3. ZOMETA [Suspect]
     Indication: PLASMA CELL MYELOMA
     Dosage: 4 MG, QMO
     Dates: start: 20020507, end: 200301
  4. CHLORHEXIDINE [Concomitant]
     Dosage: 0.12 %, BID
  5. VITAMIN D [Concomitant]
     Dates: start: 2008
  6. PREDNISONE [Concomitant]
  7. THALIDOMIDE [Concomitant]
     Dosage: 100 MG, ONCE/SINGLE
     Dates: start: 200302
  8. MELPHALAN [Concomitant]
     Dates: start: 2003
  9. ACYCLOVIR [Concomitant]
  10. VANCOMYCIN [Concomitant]
     Dates: start: 200308
  11. CEFEPIME [Concomitant]
     Dates: start: 200308
  12. SEPTRA DS [Concomitant]
     Dosage: 1 DF, BID
     Route: 048
  13. PROTONIX ^PHARMACIA^ [Concomitant]
     Dosage: 40 MG, BID
     Dates: start: 2003
  14. K-DUR [Concomitant]
     Dosage: 20 MEQ, QID
     Dates: start: 2003
  15. DEXAMETHASONE [Concomitant]
     Dates: start: 200302
  16. HERBAL PREPARATION [Concomitant]
  17. PEN-VEE-K [Concomitant]
     Dosage: 500 MG, QD
     Route: 048
  18. ZOLOFT (SERTRALINE HYDROCHLORIDE) [Concomitant]
  19. COUMADINE [Concomitant]
  20. VIAGRA [Concomitant]
  21. PROMETHAZINE W/CODEINE [Concomitant]

REACTIONS (66)
  - Osteonecrosis of jaw [Unknown]
  - Pain [Unknown]
  - Discomfort [Unknown]
  - Deformity [Unknown]
  - Hypophagia [Unknown]
  - Emotional distress [Unknown]
  - Anxiety [Unknown]
  - Anhedonia [Unknown]
  - Pain in jaw [Unknown]
  - Injury [Unknown]
  - Oral disorder [Unknown]
  - Gingival swelling [Unknown]
  - Gingival disorder [Unknown]
  - Gingival inflammation [Unknown]
  - Diabetes mellitus [Unknown]
  - Mass [Unknown]
  - Joint destruction [Unknown]
  - Deafness [Unknown]
  - Intervertebral disc protrusion [Unknown]
  - Infection [Unknown]
  - Arthralgia [Unknown]
  - Blood pressure increased [Unknown]
  - Dyspnoea exertional [Unknown]
  - Osteoarthritis [Unknown]
  - Headache [Unknown]
  - Sinusitis [Recovered/Resolved]
  - Dermatophytosis [Unknown]
  - Plasma cell myeloma [Recovering/Resolving]
  - Disease recurrence [Unknown]
  - Toxicity to various agents [Recovering/Resolving]
  - Musculoskeletal pain [Recovering/Resolving]
  - Spinal disorder [Unknown]
  - Rib fracture [Unknown]
  - Biopsy bone marrow abnormal [Unknown]
  - Soft tissue inflammation [Unknown]
  - Bone pain [Unknown]
  - Back pain [Unknown]
  - Fatigue [Unknown]
  - Cough [Unknown]
  - Bone scan abnormal [Unknown]
  - Erectile dysfunction [Unknown]
  - Alcohol abuse [Unknown]
  - Hyperglycaemia [Unknown]
  - Hypoglycaemia [Unknown]
  - Irritability [Unknown]
  - Somnolence [Unknown]
  - Mucosal inflammation [Recovering/Resolving]
  - Neutropenia [Unknown]
  - Pyrexia [Unknown]
  - Diverticulum intestinal [Unknown]
  - Neuropathy peripheral [Unknown]
  - Neoplasm progression [Unknown]
  - Malignant neoplasm progression [Unknown]
  - Epistaxis [Recovered/Resolved]
  - Pancytopenia [Unknown]
  - Radiculitis brachial [Unknown]
  - Bone lesion [Unknown]
  - Pathological fracture [Unknown]
  - Hypoaesthesia [Unknown]
  - Pain in extremity [Unknown]
  - Kyphosis [Unknown]
  - Lordosis [Unknown]
  - Aortic arteriosclerosis [Unknown]
  - Nephrolithiasis [Unknown]
  - Prostatomegaly [Unknown]
  - Insomnia [Unknown]
